FAERS Safety Report 8330854-8 (Version None)
Quarter: 2012Q2

REPORT INFORMATION
  Report Type: 
  Country: None (occurrence: None)
  Receive Date: 20120502
  Receipt Date: 20120423
  Transmission Date: 20120825
  Serious: Yes (Hospitalization)
  Sender: FDA-Public Use
  Company Number: JP-ROCHE-1062915

PATIENT
  Sex: Female
  Weight: 47.7 kg

DRUGS (9)
  1. ACTEMRA [Suspect]
     Route: 042
     Dates: start: 20100602
  2. LANSOPRAZOLE [Concomitant]
     Indication: GASTRITIS
     Dosage: BEGINNING OF DOSAGE DAY: TRIAL PREINITIATION
     Route: 048
  3. LULICONAZOLE [Concomitant]
     Indication: TINEA PEDIS
     Dosage: CREAM, PROPER QUANTITY/SINGLE USE BEGINNING OF DOSAGE DAY: TRIAL PREINITIATION
     Route: 061
  4. SUNRYTHM [Concomitant]
     Indication: ATRIAL FIBRILLATION
     Dosage: SINGLE USE BEGINNING OF DOSAGE DAY: TRIAL PREINITIATION
     Route: 048
  5. PLACEBO [Suspect]
     Indication: RHEUMATOID ARTHRITIS
     Route: 058
     Dates: start: 20100602
  6. LOXONIN [Concomitant]
     Indication: RHEUMATOID ARTHRITIS
     Dosage: BEGINNING OF DOSAGE DAY: TRIAL PREINITIATION
     Route: 048
  7. ACTEMRA [Suspect]
     Indication: RHEUMATOID ARTHRITIS
     Dosage: THERAPY POSTPONED
     Route: 058
     Dates: start: 20101117
  8. CESFALKO [Concomitant]
     Indication: GASTRITIS
     Dosage: BEGINNING OF DOSAGE DAY: TRIAL PREINITIATION
     Route: 048
  9. IMIDAPRIL HYDROCHLORIDE [Concomitant]
     Indication: ATRIAL FIBRILLATION
     Dosage: BEGINNING OF DOSAGE DAY: TRIAL PREINITIATION
     Route: 048

REACTIONS (1)
  - OCCULT BLOOD POSITIVE [None]
